FAERS Safety Report 4743915-7 (Version None)
Quarter: 2005Q3

REPORT INFORMATION
  Report Type: 
  Country: None (occurrence: None)
  Receive Date: 20050809
  Receipt Date: 20050804
  Transmission Date: 20060218
  Serious: Yes (Hospitalization)
  Sender: FDA-Public Use
  Company Number: GBWYE883804AUG05

PATIENT
  Age: 52 Year
  Sex: Female

DRUGS (17)
  1. RAPAMUNE [Suspect]
     Dosage: 3 MG 1X PER 1 DAY ORAL
     Route: 048
     Dates: start: 20050610
  2. MYCOPHENOLATE MOFETIL (MYCOPHENOLATE MOFETIL, , 0) [Suspect]
     Dosage: 500 MG 2X PER 1 DAY ORAL
     Route: 048
     Dates: start: 20050710
  3. PREDNISOLONE [Suspect]
     Dosage: 5 MG 1X PER 1 DAY ORAL
     Route: 048
     Dates: start: 20050610
  4. ZENAPAX [Suspect]
     Dosage: 75 MG 2X PER 1 DAY INTRAVENOUS
     Route: 042
     Dates: start: 20050610, end: 20050624
  5. LANSOPRAZOLE [Concomitant]
  6. ATENOLOL [Concomitant]
  7. IRBESARTAN [Concomitant]
  8. FUROSEMIDE [Concomitant]
  9. DOXAZOSIN (DOXAZOSIN) [Concomitant]
  10. MINOXIDIL [Concomitant]
  11. ......................... [Concomitant]
  12. ASPIRIN [Concomitant]
  13. ALFACALCIDOL (ALFACALCIDOL) [Concomitant]
  14. ATORVASTATIN CALCIUM [Concomitant]
  15. SODIUM BICARBONATE IN PLASTIC CONTAINER [Concomitant]
  16. ARANESP [Concomitant]
  17. CORSODYL (CHLORHEXIDINE GLUCONATE) [Concomitant]

REACTIONS (6)
  - BLOOD CREATININE INCREASED [None]
  - HYPERTENSION [None]
  - MALAISE [None]
  - PHARYNGOLARYNGEAL PAIN [None]
  - PRODUCTIVE COUGH [None]
  - PYREXIA [None]
